FAERS Safety Report 19828586 (Version 3)
Quarter: 2024Q4

REPORT INFORMATION
  Report Type: Report from Study
  Country: KR (occurrence: KR)
  Receive Date: 20210914
  Receipt Date: 20241129
  Transmission Date: 20250115
  Serious: Yes (Other)
  Sender: GLAXOSMITHKLINE
  Company Number: KR-TAKEDA-2021TJP085324

PATIENT

DRUGS (11)
  1. NIRAPARIB [Suspect]
     Active Substance: NIRAPARIB
     Indication: Fallopian tube cancer
     Dosage: 200 MILLIGRAM, QD
     Route: 048
     Dates: start: 20210503, end: 20210620
  2. NIRAPARIB [Suspect]
     Active Substance: NIRAPARIB
     Indication: Ovarian cancer recurrent
     Dosage: 200 MILLIGRAM, QD
     Route: 048
     Dates: start: 20210728, end: 20210820
  3. NIRAPARIB [Suspect]
     Active Substance: NIRAPARIB
     Dosage: 100 MILLIGRAM
     Route: 048
     Dates: start: 20210915, end: 20220715
  4. NIRAPARIB [Suspect]
     Active Substance: NIRAPARIB
     Dosage: 200 MILLIGRAM, QD
     Route: 048
     Dates: start: 20220716, end: 20220920
  5. NIRAPARIB [Suspect]
     Active Substance: NIRAPARIB
     Dosage: 100 MILLIGRAM, QD
     Route: 048
     Dates: start: 20220921, end: 20221212
  6. GASTER [Concomitant]
     Active Substance: FAMOTIDINE
     Indication: Prophylaxis
     Dosage: 20 MILLIGRAM, BID
     Route: 048
     Dates: start: 20201205, end: 20210620
  7. Mago [Concomitant]
     Indication: Prophylaxis
     Dosage: 500 MILLIGRAM, BID
     Route: 048
     Dates: start: 20201205, end: 20210620
  8. ACETAMINOPHEN [Concomitant]
     Active Substance: ACETAMINOPHEN
     Indication: Prophylaxis
     Dosage: 650 MILLIGRAM, PRN
     Route: 048
     Dates: start: 20201205, end: 20210620
  9. LEVAMLODIPINE\TELMISARTAN [Concomitant]
     Active Substance: LEVAMLODIPINE\TELMISARTAN
     Indication: Hypertension
     Dosage: UNK, QD
     Route: 048
     Dates: start: 20201127, end: 20210620
  10. LENOGRASTIM [Concomitant]
     Active Substance: LENOGRASTIM
     Indication: Pancytopenia
     Dosage: UNK
     Route: 058
     Dates: start: 20210827, end: 20210830
  11. MAXIPIME BORYUNG [Concomitant]
     Indication: Pancytopenia
     Dosage: UNK, TID
     Route: 042
     Dates: start: 20210826, end: 20210831

REACTIONS (1)
  - Haemorrhage [Recovered/Resolved]

NARRATIVE: CASE EVENT DATE: 20210812
